FAERS Safety Report 4840972-4 (Version None)
Quarter: 2005Q4

REPORT INFORMATION
  Report Type: 
  Country: None (occurrence: None)
  Receive Date: 20051130
  Receipt Date: 20050811
  Transmission Date: 20060501
  Serious: Yes (Other)
  Sender: FDA-Public Use
  Company Number: US-BRISTOL-MYERS SQUIBB COMPANY-13072608

PATIENT
  Age: 23 Year
  Sex: Female
  Weight: 82 kg

DRUGS (4)
  1. ABILIFY [Suspect]
     Indication: TOURETTE'S DISORDER
     Dosage: INITIAL DOSE OF 1/4 OF 5MG TAB; THEN INCREASED TO 1/2 OF 5MG TAB WHEN EVENT OCCURRED
     Route: 048
     Dates: start: 20050408
  2. PROZAC [Concomitant]
  3. PROLIXIN [Concomitant]
  4. KLONOPIN [Concomitant]

REACTIONS (2)
  - DEPRESSION [None]
  - SELF-INJURIOUS IDEATION [None]
